FAERS Safety Report 4343893-9 (Version None)
Quarter: 2004Q2

REPORT INFORMATION
  Report Type: 
  Country: None (occurrence: None)
  Receive Date: 20040419
  Receipt Date: 20040412
  Transmission Date: 20050107
  Serious: Yes (Death)
  Sender: FDA-Public Use
  Company Number: 200410204BYL

PATIENT
  Age: 65 Year
  Sex: Female

DRUGS (4)
  1. CIPROFLOXACIN [Suspect]
     Indication: MYCOBACTERIAL INFECTION
     Dosage: 200 MG, BID, INTRAVENOUS
     Route: 042
     Dates: start: 20040409, end: 20040410
  2. RIFAMPICIN [Concomitant]
  3. CLARITH [Concomitant]
  4. ETHAMBUTOL [Concomitant]

REACTIONS (1)
  - HAEMOLYTIC ANAEMIA [None]
